FAERS Safety Report 15531748 (Version 1)
Quarter: 2018Q4

REPORT INFORMATION
  Report Type: Spontaneous
  Country: US (occurrence: US)
  Receive Date: 20181019
  Receipt Date: 20181019
  Transmission Date: 20190205
  Serious: No
  Sender: FDA-Public Use
  Company Number: US-PFIZER INC-2018406013

PATIENT
  Age: 60 Year
  Sex: Male

DRUGS (1)
  1. LYRICA [Suspect]
     Active Substance: PREGABALIN
     Dosage: 200 MG, 4X/DAY

REACTIONS (5)
  - Gait disturbance [Unknown]
  - Thermal burn [Unknown]
  - Pain [Unknown]
  - Overdose [Unknown]
  - Miliaria [Unknown]
